FAERS Safety Report 19481252 (Version 2)
Quarter: 2021Q3

REPORT INFORMATION
  Report Type: Spontaneous
  Country: US (occurrence: US)
  Receive Date: 20210701
  Receipt Date: 20210703
  Transmission Date: 20211014
  Serious: Yes (Hospitalization)
  Sender: FDA-Public Use
  Company Number: US-TEVA-2021-US-1927468

PATIENT

DRUGS (2)
  1. TEMAZEPAM ACTAVIS [Suspect]
     Active Substance: TEMAZEPAM
     Route: 065
  2. TEMAZEPAM ACTAVIS [Suspect]
     Active Substance: TEMAZEPAM
     Indication: INSOMNIA
     Route: 065
     Dates: start: 1994

REACTIONS (5)
  - Hospitalisation [Unknown]
  - Product quality issue [Unknown]
  - Therapeutic product effect incomplete [Unknown]
  - Chest pain [Unknown]
  - Heart rate abnormal [Unknown]

NARRATIVE: CASE EVENT DATE: 20210520
